FAERS Safety Report 7015957-2 (Version None)
Quarter: 2010Q3

REPORT INFORMATION
  Report Type: 
  Country: None (occurrence: None)
  Receive Date: 20100927
  Receipt Date: 20100107
  Transmission Date: 20110219
  Serious: No
  Sender: FDA-Public Use
  Company Number: US-ASTRAZENECA-2009SE15774

PATIENT
  Age: 60 Year
  Sex: Female
  Weight: 66.2 kg

DRUGS (3)
  1. ARIMIDEX [Suspect]
     Indication: BREAST CANCER
     Route: 048
     Dates: start: 20060101, end: 20090801
  2. SEROQUEL [Suspect]
     Indication: PANIC DISORDER
     Route: 048
     Dates: start: 20090101, end: 20090101
  3. MEGOSTERAL [Concomitant]

REACTIONS (7)
  - APPETITE DISORDER [None]
  - ARTHRALGIA [None]
  - DRUG DOSE OMISSION [None]
  - NASOPHARYNGITIS [None]
  - THERAPY REGIMEN CHANGED [None]
  - WEIGHT DECREASED [None]
  - WEIGHT INCREASED [None]
